FAERS Safety Report 5090970-3 (Version None)
Quarter: 2006Q3

REPORT INFORMATION
  Report Type: 
  Country: None (occurrence: None)
  Receive Date: 20060823
  Receipt Date: 20060811
  Transmission Date: 20061208
  Serious: Yes (Death, Life-Threatening, Other)
  Sender: FDA-Public Use
  Company Number: 2006US-03321

PATIENT
  Age: 32 Year
  Sex: Female

DRUGS (3)
  1. ZIDOVUDINE [Suspect]
  2. ABACAVIR [Suspect]
  3. LAMIVUDINE [Suspect]

REACTIONS (6)
  - ADRENAL CORTEX NECROSIS [None]
  - ADRENALITIS [None]
  - CYTOMEGALOVIRUS INFECTION [None]
  - ENCEPHALITIS [None]
  - INTERSTITIAL LUNG DISEASE [None]
  - PNEUMOCYSTIS JIROVECI PNEUMONIA [None]
